FAERS Safety Report 19779543 (Version 1)
Quarter: 2021Q3

REPORT INFORMATION
  Report Type: Other
  Country: CN (occurrence: CN)
  Receive Date: 20210902
  Receipt Date: 20210902
  Transmission Date: 20211014
  Serious: Yes (Other)
  Sender: FDA-Public Use
  Company Number: CN-ROCHE-2898159

PATIENT

DRUGS (5)
  1. OXALIPLATIN. [Suspect]
     Active Substance: OXALIPLATIN
     Indication: GASTRIC CANCER
     Route: 041
  2. FLUOROURACIL. [Suspect]
     Active Substance: FLUOROURACIL
     Route: 042
  3. FLUOROURACIL. [Suspect]
     Active Substance: FLUOROURACIL
     Indication: GASTRIC CANCER
     Dosage: INTRAVENOUS BOLUS OF 400 MG/M2 FOLLOWED BY CONTINUOUS INTRAVENOUS PUMP OF 600 MG/M2 FOR 22 HOURS.
     Route: 040
  4. BEVACIZUMAB. [Suspect]
     Active Substance: BEVACIZUMAB
     Indication: GASTRIC CANCER
     Dosage: DAY1
     Route: 041
  5. CALCIUM FOLINATE [Suspect]
     Active Substance: LEUCOVORIN CALCIUM
     Indication: GASTRIC CANCER
     Dosage: DAY 1?2
     Route: 041

REACTIONS (1)
  - Renal impairment [Unknown]
